FAERS Safety Report 5475042-8 (Version None)
Quarter: 2007Q4

REPORT INFORMATION
  Report Type: 
  Country: None (occurrence: None)
  Receive Date: 20071002
  Receipt Date: 20070926
  Transmission Date: 20080405
  Serious: Yes (Life-Threatening, Hospitalization)
  Sender: FDA-Public Use
  Company Number: DE-ELI_LILLY_AND_COMPANY-DE200709006380

PATIENT
  Age: 62 Year
  Sex: Female

DRUGS (3)
  1. BYETTA [Suspect]
     Indication: DIABETES MELLITUS
     Dosage: 5 UG, 2/D
     Route: 058
     Dates: start: 20070710, end: 20070727
  2. METFORMIN HCL [Concomitant]
     Dates: end: 20070710
  3. LANTUS [Concomitant]
     Dosage: 22 IU, EACH EVENING
     Dates: end: 20070710

REACTIONS (2)
  - DIABETIC KETOACIDOSIS [None]
  - DIARRHOEA [None]
